FAERS Safety Report 21122017 (Version 1)
Quarter: 2022Q3

REPORT INFORMATION
  Report Type: Spontaneous
  Country: US (occurrence: US)
  Receive Date: 20220722
  Receipt Date: 20220722
  Transmission Date: 20221027
  Serious: No
  Sender: FDA-Public Use
  Company Number: US-SA-SAC20220719000866

PATIENT
  Age: 58 Year
  Sex: Female

DRUGS (8)
  1. DUPIXENT [Suspect]
     Active Substance: DUPILUMAB
     Dosage: 300 MG EVERY OTHER WEEK 1 SYRINGE 300MG/2ML
     Route: 058
     Dates: start: 20210512
  2. LISINOPRIL [Concomitant]
     Active Substance: LISINOPRIL
  3. LYRICA [Concomitant]
     Active Substance: PREGABALIN
  4. POTASSIUM [Concomitant]
     Active Substance: POTASSIUM
  5. SEROQUEL [Concomitant]
     Active Substance: QUETIAPINE FUMARATE
  6. SINGULAIR [Concomitant]
     Active Substance: MONTELUKAST SODIUM
  7. VENLAFAXINE [Concomitant]
     Active Substance: VENLAFAXINE HYDROCHLORIDE
  8. WELLBUTRIN [Concomitant]
     Active Substance: BUPROPION HYDROCHLORIDE

REACTIONS (9)
  - Depression [Unknown]
  - Anxiety [Unknown]
  - Restlessness [Unknown]
  - Poor quality sleep [Unknown]
  - Dry skin [Unknown]
  - Illness [Unknown]
  - Dermatitis [Unknown]
  - Cholecystectomy [Unknown]
  - Product dose omission issue [Unknown]
